FAERS Safety Report 7928351-4 (Version None)
Quarter: 2011Q4

REPORT INFORMATION
  Report Type: 
  Country: None (occurrence: None)
  Receive Date: 20111118
  Receipt Date: 20111110
  Transmission Date: 20120403
  Serious: Yes (Congenital Anomaly)
  Sender: FDA-Public Use
  Company Number: PHHY2011DK099250

PATIENT
  Sex: Male

DRUGS (4)
  1. FLUTICASONE PROPIONATE/SALMETEROL [Concomitant]
     Indication: ADVERSE DRUG REACTION
  2. SERTRALINE HYDROCHLORIDE [Suspect]
     Indication: DEPRESSION
     Route: 064
     Dates: start: 20100705
  3. PONDOCILLIN [Concomitant]
  4. RHINOCORT (BECLOMETASONE DIPROPIONATE) [Concomitant]

REACTIONS (4)
  - WEIGHT GAIN POOR [None]
  - DRUG WITHDRAWAL SYNDROME NEONATAL [None]
  - FAILURE TO THRIVE [None]
  - FOETAL EXPOSURE DURING PREGNANCY [None]
